FAERS Safety Report 20450387 (Version 2)
Quarter: 2022Q1

REPORT INFORMATION
  Report Type: Spontaneous
  Country: CL (occurrence: CL)
  Receive Date: 20220209
  Receipt Date: 20220224
  Transmission Date: 20220423
  Serious: No
  Sender: FDA-Public Use
  Company Number: CL-ORGANON-O2202CHL000703

PATIENT
  Sex: Female

DRUGS (1)
  1. NASONEX [Suspect]
     Active Substance: MOMETASONE FUROATE
     Indication: Rhinitis allergic
     Dosage: STARTED TREATMENT WITH NASONEX 1 WEEK AGO
     Dates: start: 202202

REACTIONS (1)
  - Cerebrovascular accident [Unknown]
